FAERS Safety Report 23863254 (Version 1)
Quarter: 2024Q2

REPORT INFORMATION
  Report Type: Spontaneous
  Country: US (occurrence: US)
  Receive Date: 20240516
  Receipt Date: 20240516
  Transmission Date: 20240716
  Serious: No
  Sender: FDA-Public Use
  Company Number: US-MYLANLABS-2024M1039499

PATIENT
  Age: 67 Year
  Sex: Male

DRUGS (1)
  1. DILANTIN [Suspect]
     Active Substance: PHENYTOIN
     Indication: Product used for unknown indication
     Dosage: 200 MILLIGRAM, BID (TAKE 2 CAPSULES (200 MG TOTAL) BY MOUTH 2 (TWO) TIMES A DAY)
     Route: 048

REACTIONS (1)
  - Off label use [Unknown]
